FAERS Safety Report 8252916-6 (Version None)
Quarter: 2012Q2

REPORT INFORMATION
  Report Type: 
  Country: None (occurrence: None)
  Receive Date: 20120402
  Receipt Date: 20120220
  Transmission Date: 20120825
  Serious: No
  Sender: FDA-Public Use
  Company Number: US-ABBOTT-12P-163-0906530-00

PATIENT
  Sex: Male
  Weight: 86.26 kg

DRUGS (14)
  1. ASPIRIN [Concomitant]
     Indication: PLATELET AGGREGATION ABNORMAL
     Route: 048
  2. MICARDIS [Concomitant]
     Indication: BLOOD CHOLESTEROL INCREASED
  3. METFORMIN HCL [Concomitant]
     Indication: DIABETES MELLITUS
  4. COUMADIN [Concomitant]
     Indication: CEREBROVASCULAR ACCIDENT
  5. EXELON [Concomitant]
     Indication: MEMORY IMPAIRMENT
  6. ANDROGEL [Suspect]
     Indication: BLOOD TESTOSTERONE DECREASED
     Dosage: 1 IN 1 DAY, 4 PUMPS, PUT ACROSS CHEST
     Route: 061
     Dates: start: 20120216, end: 20120216
  7. PRISTIQ [Concomitant]
     Indication: ANXIETY
  8. VITAMIN B-12 [Concomitant]
     Indication: PLATELET AGGREGATION ABNORMAL
  9. PEPCID [Concomitant]
     Indication: DYSPEPSIA
  10. COUMADIN [Concomitant]
     Indication: ANTICOAGULANT THERAPY
  11. NAMENDA [Concomitant]
     Indication: MEMORY IMPAIRMENT
  12. VYTORIN [Concomitant]
     Indication: BLOOD CHOLESTEROL INCREASED
  13. ANDROGEL [Suspect]
     Indication: LOSS OF LIBIDO
  14. FOLIC ACID [Concomitant]
     Indication: PLATELET AGGREGATION ABNORMAL

REACTIONS (4)
  - HYPOTENSION [None]
  - DYSPNOEA [None]
  - CHEST PAIN [None]
  - CHEST DISCOMFORT [None]
